FAERS Safety Report 5320278-X (Version None)
Quarter: 2007Q1

REPORT INFORMATION
  Report Type: 
  Country: None (occurrence: None)
  Receive Date: 20070215
  Receipt Date: 20061018
  Transmission Date: 20070707
  Serious: No
  Sender: FDA-Public Use
  Company Number: MC200600724

PATIENT
  Age: 69 Year
  Sex: Male
  Weight: 85.7 kg

DRUGS (2)
  1. ANGIOMAX [Suspect]
     Indication: PERCUTANEOUS CORONARY INTERVENTION
     Dates: start: 20061003, end: 20061003
  2. PLAVIX [Concomitant]

REACTIONS (1)
  - CORONARY ARTERY THROMBOSIS [None]
